FAERS Safety Report 9167557 (Version 4)
Quarter: 2014Q2

REPORT INFORMATION
  Report Type: Spontaneous
  Country: US (occurrence: US)
  Receive Date: 20130318
  Receipt Date: 20140407
  Transmission Date: 20141212
  Serious: Yes (Hospitalization, Disabling, Other)
  Sender: FDA-Public Use
  Company Number: US-009507513-1303USA006759

PATIENT
  Sex: Male
  Weight: 81.63 kg

DRUGS (3)
  1. PROPECIA [Suspect]
     Indication: ANDROGENETIC ALOPECIA
     Dosage: UNK
     Route: 048
     Dates: start: 1999
  2. PROSCAR [Suspect]
     Indication: BENIGN PROSTATIC HYPERPLASIA
     Dosage: 5 MG, QAM
     Route: 048
     Dates: start: 20040624
  3. FINASTERIDE [Suspect]
     Indication: BENIGN PROSTATIC HYPERPLASIA
     Dosage: 5 MG, QAM
     Route: 048
     Dates: start: 20110428

REACTIONS (38)
  - Organic erectile dysfunction [Not Recovered/Not Resolved]
  - Transurethral prostatectomy [Unknown]
  - Bladder outlet obstruction [Unknown]
  - Transurethral prostatectomy [Unknown]
  - Prostate ablation [Unknown]
  - Transurethral prostatectomy [Unknown]
  - Benign prostatic hyperplasia [Unknown]
  - Bladder outlet obstruction [Unknown]
  - Cognitive disorder [Not Recovered/Not Resolved]
  - Prostatomegaly [Unknown]
  - Prostatitis [Unknown]
  - Headache [Unknown]
  - Androgen deficiency [Unknown]
  - Painful ejaculation [Recovered/Resolved]
  - Hypertension [Unknown]
  - Peptic ulcer [Unknown]
  - Osteoarthritis [Unknown]
  - Intervertebral disc degeneration [Unknown]
  - Inguinal hernia [Unknown]
  - Abdominal hernia repair [Unknown]
  - Back pain [Unknown]
  - Asthenia [Unknown]
  - Gastrointestinal disorder [Unknown]
  - Azotaemia [Unknown]
  - Perineal pain [Unknown]
  - Fibrosis [Unknown]
  - Electrocardiogram ST-T segment abnormal [Unknown]
  - Prostatitis [Not Recovered/Not Resolved]
  - Bladder trabeculation [Unknown]
  - Hyperplasia [Unknown]
  - Drug ineffective [Unknown]
  - Drug ineffective [Unknown]
  - Sexual dysfunction [Not Recovered/Not Resolved]
  - Testicular pain [Unknown]
  - Depression [Unknown]
  - Gynaecomastia [Not Recovered/Not Resolved]
  - Ejaculation disorder [Recovered/Resolved]
  - Pruritus [Unknown]
